FAERS Safety Report 20301084 (Version 2)
Quarter: 2023Q4

REPORT INFORMATION
  Report Type: Spontaneous
  Country: US (occurrence: US)
  Receive Date: 20220105
  Receipt Date: 20231129
  Transmission Date: 20240110
  Serious: Yes (Other)
  Sender: FDA-Public Use
  Company Number: US-PFIZER INC-202101859308

PATIENT
  Sex: Male

DRUGS (1)
  1. MORPHINE SULFATE [Suspect]
     Active Substance: MORPHINE SULFATE
     Dosage: UNK

REACTIONS (16)
  - Arteriosclerosis coronary artery [Unknown]
  - Diabetes mellitus [Unknown]
  - Hypothyroidism [Unknown]
  - Major depression [Unknown]
  - Sinusitis [Unknown]
  - Anxiety disorder [Unknown]
  - Asthma [Unknown]
  - Back pain [Unknown]
  - Hypertension [Unknown]
  - Cough [Unknown]
  - Dyspepsia [Unknown]
  - Hyperlipidaemia [Unknown]
  - Obesity [Unknown]
  - Spinal pain [Unknown]
  - Restlessness [Unknown]
  - Drug hypersensitivity [Unknown]
